FAERS Safety Report 5213036-8 (Version None)
Quarter: 2007Q1

REPORT INFORMATION
  Report Type: 
  Country: None (occurrence: None)
  Receive Date: 20070117
  Receipt Date: 20070108
  Transmission Date: 20070707
  Serious: Yes (Death)
  Sender: FDA-Public Use
  Company Number: L07-USA-00079-01

PATIENT
  Age: 61 Year
  Sex: Male

DRUGS (6)
  1. CITALOPRAM HYDROBROMIDE [Suspect]
  2. DURAGESIC-100 [Suspect]
     Dosage: 150 MCG Q1HR TP
     Route: 061
  3. DURAGESIC-100 [Suspect]
  4. MIRTAZAPINE [Suspect]
  5. CODEINE SUL TAB [Suspect]
  6. HYDROCODONE BITARTRATE [Suspect]

REACTIONS (7)
  - CHRONIC HEPATITIS [None]
  - DRUG ABUSER [None]
  - DRUG TOXICITY [None]
  - LOSS OF CONSCIOUSNESS [None]
  - MULTIPLE DRUG OVERDOSE ACCIDENTAL [None]
  - PULMONARY OEDEMA [None]
  - VISCERAL CONGESTION [None]
